FAERS Safety Report 17237081 (Version 1)
Quarter: 2020Q1

REPORT INFORMATION
  Report Type: Spontaneous
  Country: US (occurrence: US)
  Receive Date: 20200106
  Receipt Date: 20200106
  Transmission Date: 20200409
  Serious: No
  Sender: FDA-Public Use
  Company Number: US-PFIZER INC-2020000187

PATIENT
  Age: 7 Decade
  Sex: Female
  Weight: 59.77 kg

DRUGS (14)
  1. VITAMIN D3 [Concomitant]
     Active Substance: CHOLECALCIFEROL
     Dosage: UNK
  2. IBRANCE [Suspect]
     Active Substance: PALBOCICLIB
     Indication: BREAST CANCER
     Dosage: 125 MG, CYCLIC (FOR 3 WEEKS ON AND ONE WEEK OFF)
  3. UREACIN [Concomitant]
     Dosage: UNK
  4. ATORVASTATIN [Concomitant]
     Active Substance: ATORVASTATIN
     Dosage: UNK
  5. CETAPHIL [CETYL ALCOHOL\PROPYLENE GLYCOL\SODIUM LAURYL SULFATE\STEARYL ALCOHOL] [Concomitant]
     Active Substance: CETYL ALCOHOL\PROPYLENE GLYCOL\SODIUM LAURYL SULFATE\STEARYL ALCOHOL
     Dosage: UNK
  6. LETROZOLE. [Concomitant]
     Active Substance: LETROZOLE
     Dosage: UNK
  7. PREDNISONE. [Concomitant]
     Active Substance: PREDNISONE
     Dosage: UNK
  8. IBRANCE [Suspect]
     Active Substance: PALBOCICLIB
     Dosage: 100 MG, CYCLIC (3 WEEKS ON AND 2 WEEKS OFF)
  9. CERAVE ITCH RELIEF MOISTURIZING [Concomitant]
     Active Substance: PRAMOXINE HYDROCHLORIDE
     Dosage: UNK
  10. LIPITOR [Concomitant]
     Active Substance: ATORVASTATIN CALCIUM
     Dosage: UNK
  11. CALCIUM CARBONATE. [Concomitant]
     Active Substance: CALCIUM CARBONATE
     Dosage: UNK
  12. IBRANCE [Suspect]
     Active Substance: PALBOCICLIB
     Dosage: 100 MG, DAILY (21 OUT OF 35 DAYS)
     Route: 048
     Dates: start: 20160908
  13. BACTINE [HYDROCORTISONE] [Concomitant]
     Dosage: UNK
  14. RANITIDINE. [Concomitant]
     Active Substance: RANITIDINE
     Dosage: UNK

REACTIONS (9)
  - Dry skin [Unknown]
  - Full blood count decreased [Unknown]
  - Nail disorder [Unknown]
  - Inflammation [Unknown]
  - Peripheral swelling [Unknown]
  - Fatigue [Recovering/Resolving]
  - Scratch [Unknown]
  - Arthropod bite [Unknown]
  - Erythema [Unknown]

NARRATIVE: CASE EVENT DATE: 201907
